FAERS Safety Report 11603555 (Version 1)
Quarter: 2015Q4

REPORT INFORMATION
  Report Type: Spontaneous
  Country: US (occurrence: None)
  Receive Date: 20151006
  Receipt Date: 20151006
  Transmission Date: 20160304
  Serious: Yes (Hospitalization)
  Sender: FDA-Public Use
  Company Number: None

PATIENT
  Age: 84 Year
  Sex: Female
  Weight: 48.9 kg

DRUGS (5)
  1. PROCARBAZINE [Suspect]
     Active Substance: PROCARBAZINE
     Dosage: 750 MG/DOSES ALSO PRESCRIBED FOR HOME ADMINISTRATION ON 9/6 AND 9/7, BUT NOT DOCUMENTED VIA SIGNED
     Dates: end: 20150906
  2. CYTARABINE. [Suspect]
     Active Substance: CYTARABINE
     Dosage: 0 MG CYTSRABINE HAS NOT YET BEEN ADMINISTERWED YET, AS THE PATIENT IS IN CYCLE 2 OF INDUCTION R-MPV.
     Dates: end: 20150929
  3. METHOTREXATE [Suspect]
     Active Substance: METHOTREXATE
     Dosage: 10400 MG DELAYED DUE TO DECREASED CREATININE CLEARANCE.?DELAY 2 DAYS
     Dates: end: 20150918
  4. RITUXIMAB (MOAB C2B8 ANTI CD20, CHIMERIC) [Suspect]
     Active Substance: RITUXIMAB
     Dosage: 1450 MG DELAYED DUE TO DECREASED CREATININE CLEARANCE 1 DAY
     Dates: end: 20150916
  5. VINCRISTINE SULFATE. [Suspect]
     Active Substance: VINCRISTINE SULFATE
     Dosage: 4.1 MG DELAYED DUE TO DECREASED CREATININE CLEARANCE 2 DAYS
     Dates: end: 20150918

REACTIONS (4)
  - Anaemia [None]
  - Toothache [None]
  - Dehydration [None]
  - Renal failure [None]

NARRATIVE: CASE EVENT DATE: 20150924
